FAERS Safety Report 21886851 (Version 1)
Quarter: 2023Q1

REPORT INFORMATION
  Report Type: Spontaneous
  Country: US (occurrence: US)
  Receive Date: 20230119
  Receipt Date: 20230119
  Transmission Date: 20230418
  Serious: No
  Sender: FDA-Public Use
  Company Number: US-MYLANLABS-2022M1134320

PATIENT
  Sex: Male
  Weight: 99.79 kg

DRUGS (1)
  1. SEMGLEE (INSULIN GLARGINE-YFGN) [Suspect]
     Active Substance: INSULIN GLARGINE-YFGN
     Indication: Type 2 diabetes mellitus
     Dosage: 212 INTERNATIONAL UNIT, BID
     Route: 058

REACTIONS (3)
  - Injection site atrophy [Unknown]
  - Device issue [Unknown]
  - Product quality issue [Unknown]
